FAERS Safety Report 25653297 (Version 2)
Quarter: 2025Q3

REPORT INFORMATION
  Report Type: Spontaneous
  Country: GB (occurrence: GB)
  Receive Date: 20250807
  Receipt Date: 20250916
  Transmission Date: 20251020
  Serious: Yes (Other)
  Sender: UCB
  Company Number: GB-UCBSA-2025048038

PATIENT

DRUGS (2)
  1. BIMZELX [Interacting]
     Active Substance: BIMEKIZUMAB-BKZX
     Indication: Product used for unknown indication
  2. MOUNJARO [Interacting]
     Active Substance: TIRZEPATIDE
     Indication: Product used for unknown indication

REACTIONS (2)
  - Renal impairment [Recovered/Resolved]
  - Drug interaction [Unknown]
